FAERS Safety Report 6223950-2 (Version None)
Quarter: 2009Q2

REPORT INFORMATION
  Report Type: 
  Country: None (occurrence: None)
  Receive Date: 20090612
  Receipt Date: 20090303
  Transmission Date: 20091009
  Serious: No
  Sender: FDA-Public Use
  Company Number: US-ABBOTT-09P-163-0560953-00

PATIENT
  Sex: Female
  Weight: 90.8 kg

DRUGS (5)
  1. HUMIRA [Suspect]
     Indication: CROHN'S DISEASE
     Route: 058
     Dates: start: 20080301, end: 20081201
  2. HUMIRA [Suspect]
     Route: 058
     Dates: start: 20081201
  3. OMEPRAZOLE [Concomitant]
     Indication: DYSPEPSIA
     Dosage: TAKES AT LEAST QD, UP TO TID
     Route: 048
  4. FLUOXETINE HCL [Concomitant]
     Indication: DEPRESSION
     Route: 048
  5. DARVOCET [Concomitant]
     Indication: PAIN
     Route: 048

REACTIONS (1)
  - DRUG INEFFECTIVE [None]
